FAERS Safety Report 7907487-8 (Version None)
Quarter: 2011Q4

REPORT INFORMATION
  Report Type: 
  Country: None (occurrence: None)
  Receive Date: 20111109
  Receipt Date: 20111031
  Transmission Date: 20120403
  Serious: Yes (Other)
  Sender: FDA-Public Use
  Company Number: 2011MA015939

PATIENT
  Age: 81 Year
  Sex: Female

DRUGS (7)
  1. TICLOPIDINE HCL [Concomitant]
  2. NITRO-DUR [Concomitant]
  3. CALCIUM SANDOZ [Concomitant]
  4. RAMIPRIL [Suspect]
     Indication: HYPERTENSION
     Dosage: 5 MG;QD;PO
     Route: 048
     Dates: start: 20110401, end: 20111018
  5. ALTIAZEM [Concomitant]
  6. OMEPRAZOLE [Concomitant]
  7. RISPERDAL [Concomitant]

REACTIONS (2)
  - HYPOTENSION [None]
  - PRESYNCOPE [None]
